FAERS Safety Report 6690549-3 (Version None)
Quarter: 2010Q2

REPORT INFORMATION
  Report Type: 
  Country: None (occurrence: None)
  Receive Date: 20100421
  Receipt Date: 20100419
  Transmission Date: 20101027
  Serious: Yes (Hospitalization)
  Sender: FDA-Public Use
  Company Number: A0775104A

PATIENT
  Age: 51 Year
  Sex: Female
  Weight: 75 kg

DRUGS (1)
  1. AVANDIA [Suspect]
     Dosage: 4MG UNKNOWN
     Route: 048
     Dates: start: 20020401, end: 20090224

REACTIONS (15)
  - ALOPECIA [None]
  - AMNESIA [None]
  - ARTHRALGIA [None]
  - ASTHENIA [None]
  - BONE DENSITY DECREASED [None]
  - CARDIAC DISORDER [None]
  - DYSPNOEA [None]
  - EPISTAXIS [None]
  - LIBIDO DECREASED [None]
  - PAIN [None]
  - PRURITUS [None]
  - RENAL HAEMORRHAGE [None]
  - SKIN ULCER [None]
  - TOOTH LOSS [None]
  - WEIGHT INCREASED [None]
